FAERS Safety Report 6059034-6 (Version None)
Quarter: 2009Q1

REPORT INFORMATION
  Report Type: 
  Country: None (occurrence: None)
  Receive Date: 20090130
  Receipt Date: 20090119
  Transmission Date: 20090719
  Serious: Yes (Hospitalization, Congenital Anomaly)
  Sender: FDA-Public Use
  Company Number: B0554630A

PATIENT
  Age: 1 Day
  Sex: Female
  Weight: 3.2 kg

DRUGS (4)
  1. LAMICTAL [Suspect]
     Dates: end: 20071126
  2. DEPAKENE [Suspect]
     Dates: end: 20071126
  3. URBANYL [Suspect]
     Dates: end: 20071126
  4. KEPPRA [Suspect]
     Dates: end: 20071126

REACTIONS (3)
  - DYSMORPHISM [None]
  - HYPOGLYCAEMIA [None]
  - HYPOTONIA [None]
